FAERS Safety Report 6946596-7 (Version None)
Quarter: 2010Q3

REPORT INFORMATION
  Report Type: 
  Country: None (occurrence: None)
  Receive Date: 20100824
  Receipt Date: 20100813
  Transmission Date: 20110219
  Serious: Yes (Hospitalization)
  Sender: FDA-Public Use
  Company Number: 2010AC000038

PATIENT
  Age: 77 Year
  Sex: Female

DRUGS (31)
  1. DIGOXIN [Suspect]
     Indication: ATRIAL FIBRILLATION
     Dosage: .25 MG;QD; PO
     Route: 048
     Dates: start: 19980401, end: 19980407
  2. DIGOXIN [Suspect]
     Dosage: .125 MG;QD; PO
     Route: 048
     Dates: start: 19980407, end: 20080401
  3. DIGOXIN [Suspect]
     Dosage: GT
     Dates: start: 20080401
  4. CATAPRES [Concomitant]
  5. COUMADIN [Concomitant]
  6. LISINOPRIL [Concomitant]
  7. VIOXX [Concomitant]
  8. CARDIZEM [Concomitant]
  9. HYDROCHLOROTHIAZIDE [Concomitant]
  10. ACETAMINOPHEN [Concomitant]
  11. EFFEXOR [Concomitant]
  12. PEPCID [Concomitant]
  13. TRENTAL [Concomitant]
  14. CELEBREX [Concomitant]
  15. ZOCOR [Concomitant]
  16. PERCOCET [Concomitant]
  17. FLOXIN [Concomitant]
  18. FUROSEMIDE [Concomitant]
  19. KLOR-CON [Concomitant]
  20. CARTIA XT [Concomitant]
  21. LACTINOL-E [Concomitant]
  22. BETAMETH/CLOTRIMAZOL [Concomitant]
  23. TACTINAL [Concomitant]
  24. CATAPRES [Concomitant]
  25. DILTIAZEM [Concomitant]
  26. HYDROCHLOROTHIAZIDE [Concomitant]
  27. PREVACID [Concomitant]
  28. COLACE [Concomitant]
  29. AMIODIPINE [Concomitant]
  30. DULCOLAX [Concomitant]
  31. METOPROLOL TARTRATE [Concomitant]

REACTIONS (34)
  - ABASIA [None]
  - ABDOMINAL DISTENSION [None]
  - ABDOMINAL PAIN [None]
  - ACCIDENTAL OVERDOSE [None]
  - ANGINA UNSTABLE [None]
  - ANXIETY [None]
  - ARTHRITIS [None]
  - ATRIAL FIBRILLATION [None]
  - ATRIOVENTRICULAR BLOCK COMPLETE [None]
  - BACK PAIN [None]
  - CONSTIPATION [None]
  - CORONARY ARTERY DISEASE [None]
  - COUGH [None]
  - DIVERTICULUM [None]
  - DIZZINESS [None]
  - ECCHYMOSIS [None]
  - ECONOMIC PROBLEM [None]
  - EMBOLIC STROKE [None]
  - EMOTIONAL DISORDER [None]
  - ERYTHEMA [None]
  - HEART RATE INCREASED [None]
  - HYPERTENSION [None]
  - MENTAL STATUS CHANGES [None]
  - OEDEMA PERIPHERAL [None]
  - PAIN [None]
  - PAIN IN EXTREMITY [None]
  - PNEUMONIA [None]
  - REFUSAL OF TREATMENT BY PATIENT [None]
  - SINUSITIS [None]
  - SKIN DISCOLOURATION [None]
  - UNEVALUABLE EVENT [None]
  - UPPER RESPIRATORY TRACT INFECTION [None]
  - URINARY TRACT INFECTION [None]
  - VOLVULUS [None]
